FAERS Safety Report 9554059 (Version 1)
Quarter: 2013Q3

REPORT INFORMATION
  Report Type: Spontaneous
  Country: NL (occurrence: NL)
  Receive Date: 20130925
  Receipt Date: 20130925
  Transmission Date: 20140515
  Serious: Yes (Other)
  Sender: FDA-Public Use
  Company Number: NL-ELI_LILLY_AND_COMPANY-NL201309005571

PATIENT
  Age: 67 Year
  Sex: Male

DRUGS (1)
  1. STRATTERA [Suspect]
     Indication: ATTENTION DEFICIT/HYPERACTIVITY DISORDER
     Dosage: 80 MG, UNKNOWN
     Route: 048
     Dates: start: 2012

REACTIONS (2)
  - Benign prostatic hyperplasia [Unknown]
  - Urinary retention [Recovered/Resolved]
